FAERS Safety Report 24216823 (Version 1)
Quarter: 2024Q3

REPORT INFORMATION
  Report Type: Spontaneous
  Country: US (occurrence: None)
  Receive Date: 20240815
  Receipt Date: 20240815
  Transmission Date: 20241017
  Serious: Yes (Hospitalization)
  Sender: Public
  Company Number: None

PATIENT
  Age: 88 Year
  Sex: Female

DRUGS (7)
  1. AMBRISENTAN [Suspect]
     Active Substance: AMBRISENTAN
     Indication: Pulmonary arterial hypertension
     Dosage: FREQUENCY : DAILY;?
     Route: 048
     Dates: start: 20230308
  2. SILDENAFIL [Concomitant]
  3. BUMETANIDE [Concomitant]
     Active Substance: BUMETANIDE
  4. POTASSIUM CHLORIDE [Concomitant]
     Active Substance: POTASSIUM CHLORIDE
  5. TRAMADOL [Concomitant]
  6. LEVOTHYROXINE [Concomitant]
  7. OMEPRAZOLE [Concomitant]

REACTIONS (2)
  - Dyspnoea [None]
  - Cardiac failure [None]

NARRATIVE: CASE EVENT DATE: 20240813
